FAERS Safety Report 9940597 (Version 2)
Quarter: 2014Q1

REPORT INFORMATION
  Report Type: Spontaneous
  Country: IT (occurrence: IT)
  Receive Date: 20140303
  Receipt Date: 20140312
  Transmission Date: 20141002
  Serious: Yes (Hospitalization)
  Sender: FDA-Public Use
  Company Number: IT-TEVA-464979ISR

PATIENT
  Age: 34 Year
  Sex: Female

DRUGS (6)
  1. FLECAINIDE ACETATE [Suspect]
     Indication: INTENTIONAL SELF-INJURY
     Dosage: 300 MILLIGRAM DAILY;
     Route: 048
     Dates: start: 20140121, end: 20140121
  2. MIRTAZAPINE [Suspect]
     Indication: INTENTIONAL SELF-INJURY
     Dosage: 900 MILLIGRAM DAILY;
     Route: 048
     Dates: start: 20140121, end: 20140121
  3. BUSCOFEN [Concomitant]
     Indication: PRODUCT USED FOR UNKNOWN INDICATION
  4. SOTALOL HYDROCHLORIDE [Concomitant]
     Indication: PRODUCT USED FOR UNKNOWN INDICATION
  5. SERTRALINE HYDROCHLORIDE [Concomitant]
     Indication: PRODUCT USED FOR UNKNOWN INDICATION
  6. BROMAZEPAM [Concomitant]
     Indication: PRODUCT USED FOR UNKNOWN INDICATION

REACTIONS (4)
  - Atrioventricular block first degree [Recovering/Resolving]
  - Hypotension [Recovering/Resolving]
  - Sopor [Recovering/Resolving]
  - Drug abuse [Unknown]
